FAERS Safety Report 10640843 (Version 2)
Quarter: 2014Q4

REPORT INFORMATION
  Report Type: Spontaneous
  Country: CN (occurrence: None)
  Receive Date: 20141205
  Receipt Date: 20141205
  Transmission Date: 20150529
  Serious: Yes (Hospitalization)
  Sender: FDA-Public Use
  Company Number: CN-2014-4587

PATIENT
  Age: 43 Year
  Sex: Female
  Weight: 58 kg

DRUGS (2)
  1. NEDAPLATIN (NEDAPLATIN) [Concomitant]
     Active Substance: NEDAPLATIN
  2. NAVELBINE [Suspect]
     Active Substance: VINORELBINE TARTRATE
     Indication: BREAST CANCER
     Dosage: DAY 01?
     Route: 042

REACTIONS (3)
  - Chest discomfort [None]
  - Chest pain [None]
  - Shock [None]

NARRATIVE: CASE EVENT DATE: 20141117
